FAERS Safety Report 24386743 (Version 1)
Quarter: 2024Q4

REPORT INFORMATION
  Report Type: Spontaneous
  Country: RU (occurrence: CH)
  Receive Date: 20241002
  Receipt Date: 20241002
  Transmission Date: 20250114
  Serious: Yes (Other)
  Sender: CSL BEHRING
  Company Number: RU-BEH-2022141882

PATIENT
  Sex: Male

DRUGS (2)
  1. PRIVIGEN [Suspect]
     Active Substance: HUMAN IMMUNOGLOBULIN G
     Dosage: UNK
     Route: 065
     Dates: start: 2013
  2. PRIVIGEN [Suspect]
     Active Substance: HUMAN IMMUNOGLOBULIN G
     Dosage: UNK
     Route: 065
     Dates: start: 2013

REACTIONS (5)
  - Anaphylactic shock [Unknown]
  - Bronchospasm [Unknown]
  - Angioedema [Unknown]
  - Bronchospasm [Unknown]
  - Angioedema [Unknown]

NARRATIVE: CASE EVENT DATE: 20130101
